FAERS Safety Report 17075909 (Version 3)
Quarter: 2019Q4

REPORT INFORMATION
  Report Type: Report from Study
  Country: US (occurrence: US)
  Receive Date: 20191126
  Receipt Date: 20191216
  Transmission Date: 20200122
  Serious: Yes (Hospitalization, Other)
  Sender: FDA-Public Use
  Company Number: US-GILEAD-2019-0439099

PATIENT
  Age: 70 Year
  Sex: Female

DRUGS (4)
  1. AMBRISENTAN [Suspect]
     Active Substance: AMBRISENTAN
     Indication: PULMONARY ARTERIAL HYPERTENSION
     Dosage: 10 MG, QD
     Route: 065
     Dates: start: 20130723
  2. ORENITRAM [Suspect]
     Active Substance: TREPROSTINIL
     Indication: PULMONARY HYPERTENSION
     Dosage: 1 MG, TID
     Route: 048
     Dates: start: 20180905
  3. ORENITRAM [Suspect]
     Active Substance: TREPROSTINIL
     Dosage: 2.5 MG, TID
     Route: 048
     Dates: start: 20180905
  4. SILDENAFIL. [Concomitant]
     Active Substance: SILDENAFIL

REACTIONS (2)
  - Cardiac failure congestive [Recovered/Resolved]
  - Gastrooesophageal reflux disease [Not Recovered/Not Resolved]

NARRATIVE: CASE EVENT DATE: 20191022
